FAERS Safety Report 9046191 (Version 2)
Quarter: 2013Q2

REPORT INFORMATION
  Report Type: Spontaneous
  Country: FR (occurrence: FR)
  Receive Date: 20130201
  Receipt Date: 20130422
  Transmission Date: 20140414
  Serious: Yes (Hospitalization)
  Sender: FDA-Public Use
  Company Number: PHHY2012FR110188

PATIENT
  Age: 50 Year
  Sex: Male

DRUGS (11)
  1. NISISCO [Suspect]
     Indication: HYPERTENSION
     Dosage: 1 DF (160MG VALS/12.5MG HCT), DAILY
     Route: 048
     Dates: start: 201009, end: 20121025
  2. COTAREG [Suspect]
     Indication: HYPERTENSION
     Dosage: 1 DF (VALS 160 MG, HYDR 25 MG), DAILY
     Route: 048
     Dates: end: 20121102
  3. HEMI-DAONIL [Suspect]
     Indication: DIABETES MELLITUS
     Dosage: 2 DF, DAILY
     Route: 048
     Dates: start: 200911, end: 20121024
  4. DAONIL [Suspect]
     Indication: TYPE 2 DIABETES MELLITUS
     Dosage: 1 DF, DAILY
     Route: 048
     Dates: end: 20121026
  5. GLUCOPHAGE [Concomitant]
     Dosage: 3 DF, DAILY
  6. LERCAN [Concomitant]
     Dosage: 1 DF, DAILY
  7. TIAPRIDAL [Concomitant]
     Dosage: 2 DF,DAILY
  8. TIAPRIDAL [Concomitant]
     Dosage: 250 MG, PER DAY
  9. ALPRAZOLAM [Concomitant]
     Dosage: 1 DF, DAILY
  10. ALPRAZOLAM [Concomitant]
     Dosage: 37.5 MG, PER DAY
  11. DAFALGAN [Concomitant]
     Dosage: UNK UKN, PRN

REACTIONS (2)
  - Idiopathic thrombocytopenic purpura [Recovered/Resolved]
  - Thrombocytopenia [Recovered/Resolved]
